FAERS Safety Report 12787694 (Version 2)
Quarter: 2016Q4

REPORT INFORMATION
  Report Type: Spontaneous
  Country: US (occurrence: US)
  Receive Date: 20160928
  Receipt Date: 20161107
  Transmission Date: 20170207
  Serious: No
  Sender: FDA-Public Use
  Company Number: US-GLAXOSMITHKLINE-US2016GSK140534

PATIENT
  Sex: Female

DRUGS (1)
  1. IMITREX [Suspect]
     Active Substance: SUMATRIPTAN SUCCINATE
     Indication: MIGRAINE

REACTIONS (8)
  - Device use error [Unknown]
  - Circumstance or information capable of leading to medication error [Unknown]
  - Intercepted medication error [Unknown]
  - Drug ineffective [Unknown]
  - Dizziness [Unknown]
  - Drug dose omission [Unknown]
  - Nausea [Unknown]
  - Diarrhoea [Unknown]
